FAERS Safety Report 6822740-7 (Version None)
Quarter: 2010Q3

REPORT INFORMATION
  Report Type: 
  Country: None (occurrence: None)
  Receive Date: 20100708
  Receipt Date: 20100629
  Transmission Date: 20110219
  Serious: Yes (Other)
  Sender: FDA-Public Use
  Company Number: JP-ROCHE-710423

PATIENT
  Age: 30 Year
  Sex: Female

DRUGS (1)
  1. RIVOTRIL [Suspect]
     Indication: FACIAL SPASM
     Route: 048

REACTIONS (2)
  - ABORTION SPONTANEOUS [None]
  - DRUG EXPOSURE DURING PREGNANCY [None]
